FAERS Safety Report 4435063-0 (Version None)
Quarter: 2004Q3

REPORT INFORMATION
  Report Type: 
  Country: None (occurrence: None)
  Receive Date: 20040827
  Receipt Date: 20040819
  Transmission Date: 20050211
  Serious: Yes (Other)
  Sender: FDA-Public Use
  Company Number: JP-JNJFOC-20040806218

PATIENT
  Age: 65 Year
  Sex: Female

DRUGS (4)
  1. OFLOXACIN [Suspect]
     Indication: INFECTION PROPHYLAXIS
     Route: 049
     Dates: start: 20040406, end: 20040413
  2. LAXATIVE [Concomitant]
     Route: 049
  3. IRON SULPHATE [Concomitant]
     Route: 049
  4. VITAMIN C [Concomitant]
     Route: 049

REACTIONS (1)
  - ELECTROCARDIOGRAM QT PROLONGED [None]
